FAERS Safety Report 6321570-2 (Version None)
Quarter: 2009Q3

REPORT INFORMATION
  Report Type: 
  Country: None (occurrence: None)
  Receive Date: 20090819
  Receipt Date: 20090810
  Transmission Date: 20100115
  Serious: Yes (Hospitalization)
  Sender: FDA-Public Use
  Company Number: GXKR2009TR09047

PATIENT
  Age: 28 Year
  Sex: Female

DRUGS (4)
  1. METHYLPREDNISOLONE   (METHYLPREDNISOLONE) UNKNOWN [Suspect]
     Indication: MULTIPLE SCLEROSIS
     Dosage: 1000 MG DAILY, INTRAVENOUS, 1000 MG/DAY, INTRAVENOUS, 1000 MG DAILY, INTRAVENOUS
     Route: 042
     Dates: start: 20070301
  2. METHYLPREDNISOLONE   (METHYLPREDNISOLONE) UNKNOWN [Suspect]
     Indication: MULTIPLE SCLEROSIS
     Dosage: 1000 MG DAILY, INTRAVENOUS, 1000 MG/DAY, INTRAVENOUS, 1000 MG DAILY, INTRAVENOUS
     Route: 042
     Dates: start: 20060801
  3. METHYLPREDNISOLONE   (METHYLPREDNISOLONE) UNKNOWN [Suspect]
     Indication: MULTIPLE SCLEROSIS
     Dosage: 1000 MG DAILY, INTRAVENOUS, 1000 MG/DAY, INTRAVENOUS, 1000 MG DAILY, INTRAVENOUS
     Route: 042
     Dates: start: 20061001
  4. BETAFERON [Suspect]
     Indication: MULTIPLE SCLEROSIS
     Dosage: 0.3 MG, Q48H
     Dates: start: 20070401

REACTIONS (6)
  - BIOPSY LIVER ABNORMAL [None]
  - HEPATIC FIBROSIS [None]
  - HEPATIC NECROSIS [None]
  - HEPATITIS [None]
  - MULTIPLE SCLEROSIS RELAPSE [None]
  - PROTHROMBIN TIME PROLONGED [None]
